FAERS Safety Report 16955108 (Version 1)
Quarter: 2019Q4

REPORT INFORMATION
  Report Type: Spontaneous
  Country: CA (occurrence: CA)
  Receive Date: 20191024
  Receipt Date: 20191024
  Transmission Date: 20200122
  Serious: Yes (Other)
  Sender: FDA-Public Use
  Company Number: CA-TEVA-2019-CA-1126157

PATIENT
  Age: 48 Year
  Sex: Female

DRUGS (6)
  1. PANTOLOC /01263204/ [Concomitant]
     Active Substance: PANTOPRAZOLE SODIUM
  2. ACETAMINOPHEN EXTRA STRENGTH TAB 500MG USP [Suspect]
     Active Substance: ACETAMINOPHEN
     Indication: PAIN
  3. DOCETAXEL. [Suspect]
     Active Substance: DOCETAXEL
     Dosage: SOLUTION INTRAVENOUS
     Route: 065
  4. RAN-LANSOPRAZOLE [Concomitant]
  5. TAMOXIFEN [Concomitant]
     Active Substance: TAMOXIFEN
  6. ACETAMINOPHEN EXTRA STRENGTH TAB 500MG USP [Suspect]
     Active Substance: ACETAMINOPHEN
     Indication: PYREXIA
     Route: 048

REACTIONS (1)
  - Haemolytic anaemia [Recovering/Resolving]
